FAERS Safety Report 24748626 (Version 1)
Quarter: 2024Q4

REPORT INFORMATION
  Report Type: Other
  Country: US (occurrence: US)
  Receive Date: 20241218
  Receipt Date: 20241218
  Transmission Date: 20250115
  Serious: Yes (Other)
  Sender: APPCO PHARMA LLC
  Company Number: US-Appco Pharma LLC-2167356

PATIENT
  Age: 75 Year
  Sex: Female

DRUGS (1)
  1. BACLOFEN [Suspect]
     Active Substance: BACLOFEN
     Indication: Product used for unknown indication

REACTIONS (1)
  - Neurotoxicity [Recovered/Resolved]
